FAERS Safety Report 17053061 (Version 11)
Quarter: 2020Q2

REPORT INFORMATION
  Report Type: Report from Study
  Country: None (occurrence: CH)
  Receive Date: 20191120
  Receipt Date: 20200510
  Transmission Date: 20200713
  Serious: Yes (Hospitalization)
  Sender: FDA-Public Use
  Company Number: CH-ABBVIE-19K-151-3006413-00

PATIENT
  Age: 62 Year
  Sex: Male

DRUGS (5)
  1. DUODOPA [Suspect]
     Active Substance: CARBIDOPA\LEVODOPA
     Dosage: MD:4 ML, CRD: 4 ML/H, CRN: 3 ML/H, EXTRA DOSE: 1 ML?24H THERAPY
     Route: 050
     Dates: start: 202003
  2. DUODOPA [Suspect]
     Active Substance: CARBIDOPA\LEVODOPA
     Indication: PARKINSON^S DISEASE
     Route: 050
     Dates: start: 20190805, end: 20191105
  3. DUODOPA [Suspect]
     Active Substance: CARBIDOPA\LEVODOPA
     Dosage: MD: 5 ML, CRD: 4.8 ML/H, CRN: 2 ML/H, ED: 1.5 ML 24 H THERAPY
     Route: 050
     Dates: start: 20191105, end: 20191109
  4. DUODOPA [Suspect]
     Active Substance: CARBIDOPA\LEVODOPA
     Dosage: MD:4 ML, CRD: 4 ML/H, CONTINUOUS RATE NIGHT: 3 ML/H, EXTRA DOSE: 1 ML;24 H THERAPY
     Route: 050
     Dates: start: 20191219, end: 20200301
  5. DUODOPA [Suspect]
     Active Substance: CARBIDOPA\LEVODOPA
     Dosage: MD: 5 ML, CRD: 3.5 ML/H, CRN: 2 ML/H, ED: 0 ML 24 H THERAPY
     Route: 050
     Dates: start: 20191109, end: 20191219

REACTIONS (4)
  - Intentional device misuse [Not Recovered/Not Resolved]
  - Dyskinesia [Unknown]
  - Intentional device misuse [Recovered/Resolved]
  - Psychotic disorder [Not Recovered/Not Resolved]

NARRATIVE: CASE EVENT DATE: 201911
